FAERS Safety Report 18051045 (Version 7)
Quarter: 2020Q4

REPORT INFORMATION
  Report Type: Spontaneous
  Country: US (occurrence: US)
  Receive Date: 20200721
  Receipt Date: 20201209
  Transmission Date: 20210113
  Serious: Yes (Other)
  Sender: FDA-Public Use
  Company Number: US-SA-2020SA183285

PATIENT

DRUGS (4)
  1. LANTUS [Suspect]
     Active Substance: INSULIN GLARGINE
     Dosage: 8 IU
     Route: 065
     Dates: start: 20200713
  2. LANTUS [Suspect]
     Active Substance: INSULIN GLARGINE
     Indication: TYPE 2 DIABETES MELLITUS
     Dosage: 3 IU
     Route: 065
     Dates: start: 20200702
  3. LANTUS [Suspect]
     Active Substance: INSULIN GLARGINE
     Dosage: 10 IU, QD
     Route: 065
  4. LANTUS [Suspect]
     Active Substance: INSULIN GLARGINE
     Dosage: 5 IU
     Route: 065
     Dates: start: 202007

REACTIONS (7)
  - Blood glucose increased [Unknown]
  - Drug ineffective [Unknown]
  - Blindness [Unknown]
  - Pancreatic disorder [Unknown]
  - Abdominal hernia [Unknown]
  - Vertigo [Unknown]
  - Intentional product misuse [Unknown]

NARRATIVE: CASE EVENT DATE: 202007
